APPROVED DRUG PRODUCT: UNIVASC
Active Ingredient: MOEXIPRIL HYDROCHLORIDE
Strength: 15MG **Federal Register determination that product was not discontinued or withdrawn for safety or effectiveness reasons**
Dosage Form/Route: TABLET;ORAL
Application: N020312 | Product #002
Applicant: UCB INC
Approved: Apr 19, 1995 | RLD: No | RS: No | Type: DISCN